FAERS Safety Report 21357483 (Version 4)
Quarter: 2022Q4

REPORT INFORMATION
  Report Type: Spontaneous
  Country: US (occurrence: US)
  Receive Date: 20220921
  Receipt Date: 20221013
  Transmission Date: 20230113
  Serious: No
  Sender: FDA-Public Use
  Company Number: US-UNITED THERAPEUTICS-UNT-2022-021155

PATIENT
  Sex: Female
  Weight: 52.154 kg

DRUGS (9)
  1. REMODULIN [Suspect]
     Active Substance: TREPROSTINIL
     Indication: Pulmonary arterial hypertension
     Dosage: 0.0125 ?G/KG, CONTINUING (PRE-FILED WITH 2.4 ML PER CASSETTE; PUMP RATE 16MCL PER HOUR)
     Route: 058
     Dates: start: 20220909
  2. REMODULIN [Suspect]
     Active Substance: TREPROSTINIL
     Dosage: 0.0156 ?G/KG, CONTINUING (PRE-FILED WITH 2.5ML PER CASSETTE; PUMP RATE 16MCL PER HOUR)
     Route: 058
     Dates: start: 202209
  3. REMODULIN [Suspect]
     Active Substance: TREPROSTINIL
     Dosage: 0.0188 ?G/KG, CONTINUING (PRE-FILED WITH 3 ML PER CASSETTE; PUMP RATE 24 MCL PER HOUR)
     Route: 058
     Dates: start: 202209
  4. REMODULIN [Suspect]
     Active Substance: TREPROSTINIL
     Indication: Pulmonary arterial hypertension
     Dosage: UNK UNK, CONTINUING
     Route: 058
     Dates: start: 2022
  5. REMODULIN [Suspect]
     Active Substance: TREPROSTINIL
     Dosage: 0.0313 ?G/KG (PHARMACY PRE-FILLED WITH 2.4 ML PER CASSETTE AT REMUNITY PUMP RATE OF 20 MCL PER HOUR)
     Route: 058
     Dates: start: 2022
  6. REMODULIN [Suspect]
     Active Substance: TREPROSTINIL
     Dosage: 0.0375 ?G/KG
     Route: 058
     Dates: start: 2022
  7. REMODULIN [Suspect]
     Active Substance: TREPROSTINIL
     Dosage: 0.0313 ?G/KG (PHARMACY PRE-FILLED WITH 2.4 ML PER CASSETTE; PUMP RATE OF 26 MCL PER HOUR), CONTINUIN
     Route: 058
     Dates: start: 2022
  8. OPSUMIT [Concomitant]
     Active Substance: MACITENTAN
     Indication: Product used for unknown indication
     Route: 065
  9. TADALAFIL [Concomitant]
     Active Substance: TADALAFIL
     Indication: Product used for unknown indication
     Dosage: UNK
     Route: 065

REACTIONS (13)
  - Infusion site pain [Unknown]
  - Infusion site erythema [Recovering/Resolving]
  - Infusion site warmth [Unknown]
  - Infusion site swelling [Unknown]
  - Headache [Recovered/Resolved]
  - Gastrooesophageal reflux disease [Unknown]
  - Device infusion issue [Recovered/Resolved]
  - Pain [Recovered/Resolved]
  - Nausea [Recovered/Resolved]
  - Infusion site discharge [Unknown]
  - Malaise [Unknown]
  - Retching [Unknown]
  - Infusion site extravasation [Unknown]

NARRATIVE: CASE EVENT DATE: 20220101
